FAERS Safety Report 7943617-X (Version None)
Quarter: 2011Q4

REPORT INFORMATION
  Report Type: 
  Country: None (occurrence: None)
  Receive Date: 20111128
  Receipt Date: 20111124
  Transmission Date: 20120403
  Serious: Yes (Other)
  Sender: FDA-Public Use
  Company Number: AU-PFIZER INC-2011200830

PATIENT
  Age: 72 Year
  Sex: Female

DRUGS (2)
  1. LIPITOR [Suspect]
     Indication: BLOOD CHOLESTEROL
     Dosage: UNK
     Dates: start: 20100101, end: 20110501
  2. PREMARIN [Concomitant]
     Dosage: UNK

REACTIONS (2)
  - HEADACHE [None]
  - MEMORY IMPAIRMENT [None]
